FAERS Safety Report 8954811 (Version 1)
Quarter: 2012Q4

REPORT INFORMATION
  Report Type: Spontaneous
  Country: TW (occurrence: None)
  Receive Date: 20121130
  Receipt Date: 20121130
  Transmission Date: 20130627
  Serious: Yes (Other)
  Sender: FDA-Public Use
  Company Number: FK201203514

PATIENT
  Age: 34 Year
  Sex: Female

DRUGS (4)
  1. IRINOTECAN [Suspect]
     Indication: COLON CANCER METASTATIC
     Dosage: 180 mg/m2,  Intravenous  (not otherwise specific)
     Route: 042
  2. FLUOROURACIL [Suspect]
     Indication: COLON CANCER METASTATIC
     Dosage: 400 mg/m2,  Intravenous  (not otherwise specified)
     Route: 042
  3. LEUCOVORIN CALCIUM [Suspect]
     Indication: COLON CANCER METASTATIC
     Dosage: 200 mg/m2,  Intravenous  (not otherwise specified)
     Route: 042
  4. ERBITUX [Suspect]
     Indication: COLON CANCER METASTATIC

REACTIONS (4)
  - Nerve injury [None]
  - Dysphonia [None]
  - Chest pain [None]
  - Vocal cord paralysis [None]
